FAERS Safety Report 19465737 (Version 19)
Quarter: 2022Q2

REPORT INFORMATION
  Report Type: Spontaneous
  Country: GB (occurrence: GB)
  Receive Date: 20210626
  Receipt Date: 20220615
  Transmission Date: 20220720
  Serious: Yes (Hospitalization, Disabling, Other)
  Sender: FDA-Public Use
  Company Number: GB-EMA-DD-20191217-SHARMA_D2-090642

PATIENT
  Age: 8 Year
  Sex: Female
  Weight: 23.35 kg

DRUGS (48)
  1. LANSOPRAZOLE [Suspect]
     Active Substance: LANSOPRAZOLE
     Indication: Product used for unknown indication
     Dosage: UNK
     Route: 065
  2. RANITIDINE [Suspect]
     Active Substance: RANITIDINE
     Indication: Gastrooesophageal reflux disease
     Dosage: 50 MG, BID
     Route: 048
  3. RANITIDINE [Suspect]
     Active Substance: RANITIDINE
     Dosage: UNK
     Route: 048
  4. RANITIDINE [Suspect]
     Active Substance: RANITIDINE
     Dosage: 100 MILLIGRAM, DAILY
     Route: 048
     Dates: start: 20191018
  5. EVEROLIMUS [Suspect]
     Active Substance: EVEROLIMUS
     Indication: Brain stem glioma
     Dosage: 5 MILLIGRAM, DAILY, 5MG MONDAY/WEDNESDAY/FRIDAY
     Route: 048
  6. EVEROLIMUS [Suspect]
     Active Substance: EVEROLIMUS
     Dosage: 2.5 MILLIGRAM, DAILY, TUESDAY/THURSDAY/SATURDAY/SUNDAY
     Route: 048
     Dates: start: 20200212
  7. EVEROLIMUS [Suspect]
     Active Substance: EVEROLIMUS
     Dosage: 5 MG ON MONDAY,WEDNESDAY AND FRIDAY AND 2.5 MG ON TUESDAY,THURSDAY,SATURDAY AND SUNDAY ()
     Route: 048
     Dates: start: 20190717, end: 20191014
  8. EVEROLIMUS [Suspect]
     Active Substance: EVEROLIMUS
     Dosage: 5 MILLIGRAM, DAILY, MONDAY/WEDNESDAY/FRIDAY
     Route: 048
     Dates: start: 20210207
  9. EVEROLIMUS [Suspect]
     Active Substance: EVEROLIMUS
     Dosage: 2.5 MG, 1X/DAY TU/TH/SAT/SUN
     Route: 048
     Dates: start: 20210207
  10. EVEROLIMUS [Suspect]
     Active Substance: EVEROLIMUS
     Dosage: 5 MG ON MONDAY, WEDNESDAY AND FRIDAY AND 2.5 MG ON TUESDAY, THURSDAY, SATURDAY AND SUNDAY ()
     Route: 048
     Dates: start: 20191001
  11. EVEROLIMUS [Suspect]
     Active Substance: EVEROLIMUS
     Dosage: 5 MG ON M/W/F AND 2.5 MG ON TU/TH/SAT/SUN
     Route: 048
     Dates: start: 20190717, end: 20191014
  12. EVEROLIMUS [Suspect]
     Active Substance: EVEROLIMUS
     Dosage: 2.5 MG ON TUESDAY, THURSDAY, SATURDAY AND SUNDAY
     Route: 048
     Dates: start: 20191001
  13. EVEROLIMUS [Suspect]
     Active Substance: EVEROLIMUS
     Dosage: 5 MG M/W/F;
     Route: 048
     Dates: start: 20200212
  14. EVEROLIMUS [Suspect]
     Active Substance: EVEROLIMUS
     Dosage: 2.5 MG, 1X/DAY TU/TH/SAT/SUN
     Route: 065
     Dates: start: 20200212
  15. AFINITOR [Suspect]
     Active Substance: EVEROLIMUS
     Indication: Product used for unknown indication
     Dosage: 5 MG MONDAY/WEDNESDAY/FRIDAY AND 2.5 MG TUESDAY/THURSDAY/SATURDAY/SUNDAY
     Route: 048
     Dates: start: 20190718, end: 20200207
  16. AFINITOR [Suspect]
     Active Substance: EVEROLIMUS
     Dosage: 5 MG MONDAY/WEDNESDAY/FRIDAY AND 2.5 MG TUESDAY/THURSDAY/SATURDAY/SUNDAY
     Route: 048
     Dates: start: 20200213
  17. AFINITOR [Suspect]
     Active Substance: EVEROLIMUS
     Dosage: 5 MG MONDAY/WEDNESDAY/FRIDAY AND 2.5 MG TUESDAY/THURSDAY/SATURDAY/SUNDAY
     Route: 048
     Dates: start: 20200212
  18. AFINITOR [Suspect]
     Active Substance: EVEROLIMUS
     Dosage: 5 MG MONDAY/WEDNESDAY/FRIDAY AND 2.5 MG TUESDAY/THURSDAY/SATURDAY/SUNDAY
     Route: 048
     Dates: start: 20190717, end: 20200207
  19. AFINITOR [Suspect]
     Active Substance: EVEROLIMUS
     Dosage: 2.5 MG, ON TUESDAY, THURSDAY, SATURDAY AND SUNDAY
     Route: 048
     Dates: start: 20190718, end: 20200207
  20. AFINITOR [Suspect]
     Active Substance: EVEROLIMUS
     Dosage: UNK, UNK (5 MG MONDAY/WEDNESDAY/FRIDAY AND 2.5 MG TUESDAY/THURSDAY/SATURDAY/SUNDAY)
     Route: 048
     Dates: start: 20190718, end: 20200207
  21. AFINITOR [Suspect]
     Active Substance: EVEROLIMUS
     Dosage: UNK, UNK (5 MG MONDAY/WEDNESDAY/FRIDAY AND 2.5 MG TUESDAY/THURSDAY/SATURDAY/SUNDAY)
     Route: 048
     Dates: start: 20190717, end: 20191014
  22. LOPERAMIDE HYDROCHLORIDE [Suspect]
     Active Substance: LOPERAMIDE HYDROCHLORIDE
     Indication: Product used for unknown indication
     Route: 065
  23. DEXAMETHASONE [Suspect]
     Active Substance: DEXAMETHASONE
     Indication: Product used for unknown indication
     Dosage: UNK ()
     Route: 065
  24. DEXAMETHASONE [Suspect]
     Active Substance: DEXAMETHASONE
     Dosage: 7 MILLIGRAM, QD (3.5 MG, BID)
     Route: 048
     Dates: start: 20200210
  25. DEXAMETHASONE [Suspect]
     Active Substance: DEXAMETHASONE
     Dosage: 9.2 MILLIGRAM, DAILY
     Route: 048
     Dates: start: 20200207, end: 20200221
  26. DEXAMETHASONE [Suspect]
     Active Substance: DEXAMETHASONE
     Dosage: 1.6 MILLIGRAM, DAILY
     Route: 048
     Dates: start: 20200215, end: 20200221
  27. DEXAMETHASONE [Suspect]
     Active Substance: DEXAMETHASONE
     Dosage: 3.5 MILLIGRAM, DAILY
     Route: 048
     Dates: start: 20200212
  28. DEXAMETHASONE [Suspect]
     Active Substance: DEXAMETHASONE
     Dosage: 3.5 MILLIGRAM, BID
     Route: 048
     Dates: start: 20200210
  29. DEXAMETHASONE [Suspect]
     Active Substance: DEXAMETHASONE
     Dosage: 4.6 MILLIGRAM, UNK
     Route: 048
     Dates: start: 20200207, end: 20200221
  30. LOPERAMIDE [Suspect]
     Active Substance: LOPERAMIDE
     Indication: Diarrhoea
     Dosage: 2 MILLIGRAM, QID, 2 MG ONE CAPSULE UP TO FOUR TIMES A DAY
     Route: 065
  31. ACETAMINOPHEN [Suspect]
     Active Substance: ACETAMINOPHEN
     Indication: Product used for unknown indication
     Dosage: UNK UNK, QD PM ()
     Route: 048
  32. VANDETANIB [Suspect]
     Active Substance: VANDETANIB
     Indication: Brain stem glioma
     Dosage: 100 MG, QOD
     Route: 048
  33. VANDETANIB [Suspect]
     Active Substance: VANDETANIB
     Dosage: 100 MG, QOD (65 MG/M2)
     Route: 048
     Dates: start: 20191009, end: 20191014
  34. VANDETANIB [Suspect]
     Active Substance: VANDETANIB
     Dosage: 100 MG, QOD (65 MG/M2)
     Route: 048
     Dates: start: 20191018, end: 20200207
  35. VANDETANIB [Suspect]
     Active Substance: VANDETANIB
     Dosage: 65 MG/M2, QD
     Route: 065
     Dates: start: 20200316, end: 20200420
  36. VANDETANIB [Suspect]
     Active Substance: VANDETANIB
     Dosage: 65 MG/M2, QD
     Route: 065
     Dates: start: 20200212, end: 20200302
  37. VANDETANIB [Suspect]
     Active Substance: VANDETANIB
     Dosage: 54 MILLIGRAM/SQ. METER, UNK
     Route: 048
     Dates: start: 20200212, end: 20200302
  38. VANDETANIB [Suspect]
     Active Substance: VANDETANIB
     Dosage: 65 MG/M2, QD
     Route: 065
     Dates: start: 20191009, end: 20191014
  39. VANDETANIB [Suspect]
     Active Substance: VANDETANIB
     Dosage: 100 MG, QOD;
     Route: 048
     Dates: start: 20200212, end: 20200302
  40. DEXAMETHASONE [Concomitant]
     Active Substance: DEXAMETHASONE
     Indication: Product used for unknown indication
     Dosage: 4 MILLIGRAM, BID
     Route: 065
     Dates: start: 20191101, end: 20200221
  41. DEXAMETHASONE [Concomitant]
     Active Substance: DEXAMETHASONE
     Dosage: 0.5 MILLIGRAM, UNK
     Route: 065
     Dates: end: 20200221
  42. DEXAMETHASONE [Concomitant]
     Active Substance: DEXAMETHASONE
     Dosage: UNK
     Route: 065
  43. COTRIMOXAZOLE [Concomitant]
     Active Substance: SULFAMETHOXAZOLE\TRIMETHOPRIM
     Indication: Product used for unknown indication
     Dosage: 360 MG BD ON SAT/SUN ONLY
     Route: 065
  44. COTRIMOXAZOLE [Concomitant]
     Active Substance: SULFAMETHOXAZOLE\TRIMETHOPRIM
     Dosage: 720 MILLIGRAM, QD (360 MG, BID (7.5 ML) ON SATURDAYS
     Route: 048
  45. COTRIMOXAZOLE [Concomitant]
     Active Substance: SULFAMETHOXAZOLE\TRIMETHOPRIM
     Dosage: UNK
     Route: 065
  46. COTRIMOXAZOLE [Concomitant]
     Active Substance: SULFAMETHOXAZOLE\TRIMETHOPRIM
     Route: 065
  47. COTRIMOXAZOLE [Concomitant]
     Active Substance: SULFAMETHOXAZOLE\TRIMETHOPRIM
     Route: 065
  48. RANITIDINE [Concomitant]
     Active Substance: RANITIDINE
     Indication: Product used for unknown indication
     Dosage: 50 MILLIGRAM, TWO TIMES A DAY
     Route: 065
     Dates: start: 20191018

REACTIONS (37)
  - Facial paralysis [Recovered/Resolved]
  - Ataxia [Recovered/Resolved]
  - Facial paralysis [Recovered/Resolved]
  - Blood cholesterol increased [Recovered/Resolved]
  - Hemiparesis [Unknown]
  - Flatulence [Recovered/Resolved]
  - Reflux gastritis [Recovered/Resolved]
  - Electrocardiogram QT prolonged [Recovered/Resolved]
  - Disease progression [Unknown]
  - Ocular hyperaemia [Recovered/Resolved]
  - Alanine aminotransferase increased [Recovered/Resolved]
  - Hypophosphataemia [Recovered/Resolved]
  - White blood cell count decreased [Not Recovered/Not Resolved]
  - Lymphocyte count decreased [Not Recovered/Not Resolved]
  - Neutrophil count decreased [Recovered/Resolved]
  - Myoclonus [Recovered/Resolved]
  - Blood creatinine increased [Unknown]
  - Abdominal distension [Recovered/Resolved]
  - Stomatitis [Recovered/Resolved]
  - Ataxia [Unknown]
  - Blood cholesterol increased [Not Recovered/Not Resolved]
  - Blood triglycerides increased [Unknown]
  - Hypophagia [Not Recovered/Not Resolved]
  - Product use in unapproved indication [Unknown]
  - Neutrophil count decreased [Recovered/Resolved]
  - Blood creatinine increased [Recovered/Resolved]
  - Hypertension [Not Recovered/Not Resolved]
  - Brain stem glioma [Unknown]
  - Blood cholesterol increased [Recovered/Resolved]
  - Malignant neoplasm progression [Unknown]
  - Gastrooesophageal reflux disease [Recovered/Resolved]
  - Abdominal distension [Recovered/Resolved]
  - Facial paralysis [Unknown]
  - Off label use [Unknown]
  - Abdominal distension [Recovered/Resolved]
  - Brain stem glioma [Not Recovered/Not Resolved]
  - Mucosal inflammation [Recovered/Resolved]

NARRATIVE: CASE EVENT DATE: 20190111
